FAERS Safety Report 5350414-0 (Version None)
Quarter: 2007Q2

REPORT INFORMATION
  Report Type: 
  Country: None (occurrence: None)
  Receive Date: 20070605
  Receipt Date: 20070605
  Transmission Date: 20071010
  Serious: Yes (Life-Threatening)
  Sender: FDA-Public Use
  Company Number: None

PATIENT
  Sex: Male
  Weight: 94.3482 kg

DRUGS (1)
  1. ZOCOR [Suspect]
     Indication: HYPERCHOLESTEROLAEMIA
     Dosage: 20MG DAILY PO
     Route: 048
     Dates: start: 19990101, end: 20060905

REACTIONS (2)
  - ACUTE RESPIRATORY DISTRESS SYNDROME [None]
  - DYSPNOEA [None]
